FAERS Safety Report 10227865 (Version 1)
Quarter: 2014Q2

REPORT INFORMATION
  Report Type: Spontaneous
  Country: FR (occurrence: FR)
  Receive Date: 20140610
  Receipt Date: 20140610
  Transmission Date: 20141212
  Serious: Yes (Other)
  Sender: FDA-Public Use
  Company Number: FR-ASTRAZENECA-2014SE38936

PATIENT
  Age: 23781 Day
  Sex: Female
  Weight: 60 kg

DRUGS (9)
  1. CRESTOR [Suspect]
     Indication: HYPERTENSION
     Route: 048
     Dates: start: 2013
  2. CRESTOR [Suspect]
     Indication: CARDIOVASCULAR EVENT PROPHYLAXIS
     Route: 048
     Dates: start: 2013
  3. CRESTOR [Suspect]
     Indication: HYPERTENSION
     Route: 048
     Dates: end: 20140402
  4. CRESTOR [Suspect]
     Indication: CARDIOVASCULAR EVENT PROPHYLAXIS
     Route: 048
     Dates: end: 20140402
  5. REVLIMID [Concomitant]
     Dates: start: 201401
  6. REVLIMID [Concomitant]
     Dates: start: 201402
  7. REVLIMID [Concomitant]
     Dates: start: 201403, end: 20140306
  8. JAKAVI [Concomitant]
     Dates: end: 20140224
  9. JAKAVI [Concomitant]
     Dates: start: 20130918

REACTIONS (1)
  - Hypocholesterolaemia [Unknown]
